FAERS Safety Report 15612059 (Version 2)
Quarter: 2019Q2

REPORT INFORMATION
  Report Type: Spontaneous
  Country: US (occurrence: US)
  Receive Date: 20181113
  Receipt Date: 20190409
  Transmission Date: 20190711
  Serious: Yes (Other)
  Sender: FDA-Public Use
  Company Number: US-SA-2018SA311347

PATIENT
  Age: 48 Year
  Sex: Female

DRUGS (3)
  1. NEOSAR [Concomitant]
     Active Substance: CYCLOPHOSPHAMIDE
     Dosage: UNK UNK, UNK
     Route: 065
  2. TAXOTERE [Suspect]
     Active Substance: DOCETAXEL
     Dosage: 157 MG, Q3W
     Route: 042
     Dates: start: 20101102, end: 20101102
  3. TAXOTERE [Suspect]
     Active Substance: DOCETAXEL
     Dosage: 157 MG, Q3W
     Route: 042
     Dates: start: 20100720, end: 20100720

REACTIONS (2)
  - Emotional distress [Unknown]
  - Alopecia [Unknown]

NARRATIVE: CASE EVENT DATE: 201205
